FAERS Safety Report 8820557 (Version 3)
Quarter: 2012Q4

REPORT INFORMATION
  Report Type: 
  Country: US (occurrence: US)
  Receive Date: 20121002
  Receipt Date: 20121217
  Transmission Date: 20130627
  Serious: Yes (Hospitalization, Other)
  Sender: FDA-Public Use
  Company Number: US-009507513-1203USA04038

PATIENT

DRUGS (4)
  1. FOSAMAX [Suspect]
     Indication: OSTEOPOROSIS
     Dosage: 10 mg, UNK
     Route: 048
     Dates: start: 200004, end: 200201
  2. FOSAMAX [Suspect]
     Dosage: 70 mg, UNK
     Route: 048
     Dates: start: 200201, end: 200810
  3. FOSAMAX [Suspect]
     Indication: OSTEOPOROSIS
     Dosage: 70 mg, UNK
     Route: 048
     Dates: start: 200801, end: 20100327
  4. VITAMINS (UNSPECIFIED) [Concomitant]
     Dosage: 1 DF, qd

REACTIONS (20)
  - Femur fracture [Recovering/Resolving]
  - Intramedullary rod insertion [Unknown]
  - Tooth extraction [Unknown]
  - Fungal infection [Unknown]
  - Hypertension [Unknown]
  - Blood cholesterol increased [Unknown]
  - Diabetes mellitus [Unknown]
  - Cataract [Unknown]
  - Hypothyroidism [Unknown]
  - Anaemia postoperative [Unknown]
  - Osteoarthritis [Unknown]
  - Constipation [Unknown]
  - Urinary incontinence [Unknown]
  - Cystocele [Unknown]
  - Rectocele [Unknown]
  - Fall [Unknown]
  - Head injury [Unknown]
  - Packed red blood cell transfusion [Unknown]
  - Thyroidectomy [Unknown]
  - Appendicectomy [Unknown]
